FAERS Safety Report 8175851-0 (Version None)
Quarter: 2012Q1

REPORT INFORMATION
  Report Type: 
  Country: None (occurrence: None)
  Receive Date: 20120301
  Receipt Date: 20120222
  Transmission Date: 20120608
  Serious: Yes (Hospitalization)
  Sender: FDA-Public Use
  Company Number: GB-TEVA-324639ISR

PATIENT
  Age: 24 Year
  Sex: Female
  Weight: 40 kg

DRUGS (7)
  1. TACROLIMUS [Suspect]
     Dosage: 80 MG, UNK
     Route: 048
     Dates: start: 20120206, end: 20120206
  2. MYCOPHENOLIC ACID [Suspect]
     Dosage: 85 DF, UNK
     Route: 048
     Dates: start: 20120206, end: 20120206
  3. PREDNISOLONE [Concomitant]
     Dosage: 5 MG, UNK
  4. LANSOPRAZOLE [Concomitant]
  5. LEVOTHYROXINE SODIUM [Concomitant]
  6. ASPIRIN [Concomitant]
  7. AMLODIPINE [Concomitant]

REACTIONS (2)
  - BLOOD CREATININE DECREASED [None]
  - INTENTIONAL OVERDOSE [None]
